FAERS Safety Report 22600235 (Version 1)
Quarter: 2023Q2

REPORT INFORMATION
  Report Type: Spontaneous
  Country: US (occurrence: US)
  Receive Date: 20230614
  Receipt Date: 20230614
  Transmission Date: 20230722
  Serious: No
  Sender: FDA-Public Use
  Company Number: US-MYLANLABS-2023M1055473

PATIENT
  Sex: Female
  Weight: 47.17 kg

DRUGS (1)
  1. ESTRADIOL TRANSDERMAL SYSTEM [Suspect]
     Active Substance: ESTRADIOL
     Indication: Oestrogen replacement therapy
     Dosage: 0.1 MILLIGRAM, QD (3 PATCHES IN ONE WEEK)
     Route: 062
     Dates: start: 20230514

REACTIONS (2)
  - Inappropriate schedule of product administration [Unknown]
  - Product adhesion issue [Unknown]
